FAERS Safety Report 5959169-X (Version None)
Quarter: 2008Q4

REPORT INFORMATION
  Report Type: 
  Country: None (occurrence: None)
  Receive Date: 20081120
  Receipt Date: 20080423
  Transmission Date: 20090506
  Serious: No
  Sender: FDA-Public Use
  Company Number: A0724332A

PATIENT
  Age: 52 Year
  Sex: Female

DRUGS (3)
  1. WELLBUTRIN SR [Suspect]
     Indication: DEPRESSION
     Dosage: 100MG PER DAY
     Route: 048
     Dates: start: 20000101, end: 20071001
  2. PROZAC [Suspect]
     Indication: DEPRESSION
     Dosage: 20MG PER DAY
     Dates: end: 20070901
  3. SYNTHROID [Concomitant]

REACTIONS (2)
  - ANXIETY [None]
  - THERAPEUTIC RESPONSE UNEXPECTED [None]
